FAERS Safety Report 16768429 (Version 1)
Quarter: 2019Q3

REPORT INFORMATION
  Report Type: Spontaneous
  Country: JP (occurrence: JP)
  Receive Date: 20190903
  Receipt Date: 20190903
  Transmission Date: 20191005
  Serious: Yes (Other)
  Sender: FDA-Public Use
  Company Number: JP-TAKEDA-2019TJP020517

PATIENT
  Sex: Male

DRUGS (3)
  1. LIPIDIL [Concomitant]
     Active Substance: FENOFIBRATE
     Dosage: UNK DOSAGE IS UNKNOWN
     Route: 048
  2. ACTOS [Suspect]
     Active Substance: PIOGLITAZONE HYDROCHLORIDE
     Indication: PRODUCT USED FOR UNKNOWN INDICATION
     Dosage: UNK DOSAGE IS UNKNOWN
     Route: 048
     Dates: start: 201812
  3. ETHYL ICOSAPENTATE [Concomitant]
     Active Substance: ICOSAPENT ETHYL
     Dosage: UNK DOSAGE IS UNKNOWN
     Route: 048

REACTIONS (1)
  - Renal impairment [Unknown]
